FAERS Safety Report 6936093-7 (Version None)
Quarter: 2010Q3

REPORT INFORMATION
  Report Type: 
  Country: None (occurrence: None)
  Receive Date: 20100823
  Receipt Date: 20100812
  Transmission Date: 20110219
  Serious: Yes (Hospitalization, Other)
  Sender: FDA-Public Use
  Company Number: JP-NOVOPROD-312393

PATIENT
  Age: 71 Year
  Sex: Female
  Weight: 57 kg

DRUGS (21)
  1. NOVOLIN R [Suspect]
     Indication: TYPE 2 DIABETES MELLITUS
     Dosage: 14 IU, QD (10-0-4-0)
     Route: 058
     Dates: start: 20060101, end: 20080316
  2. NOVORAPID CHU FLEXPEN [Suspect]
     Indication: TYPE 2 DIABETES MELLITUS
     Dosage: 22 IU, QD (12 IU MORNING - 10 IU NOON)
     Route: 058
     Dates: start: 20081016
  3. NOVORAPID CHU FLEXPEN [Suspect]
     Dosage: 18 IU, QD (10-8-0-0)
     Route: 058
  4. NOVORAPID CHU FLEXPEN [Suspect]
     Dosage: 15 IU, QD (5-5-5-0)
     Route: 058
     Dates: start: 20091001
  5. NOVORAPID CHU FLEXPEN [Suspect]
     Dosage: 24 IU, QD (8-8-8-0)
     Route: 058
     Dates: end: 20100201
  6. NOVORAPID CHU FLEXPEN [Suspect]
     Dosage: 21 IU, QD (7-6-8-0)
     Route: 058
     Dates: start: 20100201
  7. NOVORAPID 30 MIX CHU FLEXPEN [Suspect]
     Indication: TYPE 2 DIABETES MELLITUS
     Dosage: 14 IU, QD
     Route: 058
     Dates: start: 20081117
  8. NOVORAPID 30 MIX CHU FLEXPEN [Suspect]
     Dosage: 18 IU, QD (0-0-18-0)
     Route: 058
     Dates: end: 20091002
  9. LEVEMIR [Suspect]
     Indication: TYPE 2 DIABETES MELLITUS
     Dosage: 9 IU, QD
     Route: 058
     Dates: start: 20100217
  10. HUMULIN R [Suspect]
     Indication: TYPE 2 DIABETES MELLITUS
     Dosage: 32 IU, QD
     Route: 058
     Dates: start: 20080929, end: 20081015
  11. LANTUS [Suspect]
     Indication: TYPE 2 DIABETES MELLITUS
     Dosage: 12 IU, QD (0-0-0-12)
     Dates: start: 20091003
  12. LANTUS [Suspect]
     Dosage: 18 IU, QD (0-0-0-18)
     Route: 058
     Dates: end: 20100216
  13. MEVALOTIN [Concomitant]
     Indication: PRODUCT USED FOR UNKNOWN INDICATION
     Dosage: 10 MG, QD
     Route: 048
     Dates: start: 20100201
  14. MAGMITT [Concomitant]
     Indication: PRODUCT USED FOR UNKNOWN INDICATION
     Dosage: 750 MG, QD
     Route: 048
     Dates: start: 20081001
  15. BLOPRESS [Concomitant]
     Indication: PRODUCT USED FOR UNKNOWN INDICATION
     Dosage: 4 MG, QD
     Route: 048
     Dates: start: 20100201
  16. ACTOS [Concomitant]
     Indication: PRODUCT USED FOR UNKNOWN INDICATION
     Dosage: 15 MG, QD
     Route: 048
     Dates: start: 20090120
  17. ASPIRIN [Concomitant]
     Indication: PRODUCT USED FOR UNKNOWN INDICATION
     Dosage: 100 MG, QD
     Route: 048
     Dates: start: 20080901
  18. PLAVIX [Concomitant]
     Indication: PRODUCT USED FOR UNKNOWN INDICATION
     Dosage: 75 MG, QD
     Route: 048
     Dates: start: 20080901
  19. ARTIST [Concomitant]
     Indication: PRODUCT USED FOR UNKNOWN INDICATION
     Dosage: 2.5 MG, QD
     Route: 048
     Dates: start: 20080901
  20. SIGMART [Concomitant]
     Indication: PRODUCT USED FOR UNKNOWN INDICATION
     Dosage: 15 MG, QD
     Route: 048
     Dates: start: 20080901
  21. TAKEPRON [Concomitant]
     Indication: PRODUCT USED FOR UNKNOWN INDICATION
     Dosage: 15 MG, QD
     Route: 048
     Dates: start: 20080901

REACTIONS (4)
  - ANTI-INSULIN ANTIBODY INCREASED [None]
  - DIABETES MELLITUS INADEQUATE CONTROL [None]
  - HYPERGLYCAEMIA [None]
  - HYPOGLYCAEMIA [None]
